FAERS Safety Report 20334165 (Version 2)
Quarter: 2022Q1

REPORT INFORMATION
  Report Type: Spontaneous
  Country: PL (occurrence: PL)
  Receive Date: 20220113
  Receipt Date: 20220120
  Transmission Date: 20220423
  Serious: Yes (Other)
  Sender: FDA-Public Use
  Company Number: PL-BEH-2022140675

PATIENT
  Sex: Male

DRUGS (1)
  1. PRIVIGEN [Suspect]
     Active Substance: HUMAN IMMUNOGLOBULIN G
     Indication: Neuropathy peripheral
     Dosage: EVERY 4-6 WEEKS
     Route: 065

REACTIONS (6)
  - Gait inability [Unknown]
  - Condition aggravated [Unknown]
  - No adverse event [Unknown]
  - Off label use [Unknown]
  - Product availability issue [Unknown]
  - Product availability issue [Unknown]
